FAERS Safety Report 7527855-6 (Version None)
Quarter: 2011Q2

REPORT INFORMATION
  Report Type: 
  Country: None (occurrence: None)
  Receive Date: 20110531
  Receipt Date: 20110518
  Transmission Date: 20111010
  Serious: Yes (Other)
  Sender: FDA-Public Use
  Company Number: JP-2011-10807

PATIENT
  Age: 67 Year
  Sex: Male

DRUGS (2)
  1. SAMSCA [Suspect]
     Dosage: 7.5 MG MILLIGRAM(S), QD, ORAL; 15 MG MILLIGRAM(S), QD, ORAL
     Route: 048
     Dates: start: 20110429, end: 20110512
  2. SAMSCA [Suspect]
     Dosage: 7.5 MG MILLIGRAM(S), QD, ORAL; 15 MG MILLIGRAM(S), QD, ORAL
     Route: 048
     Dates: start: 20110513, end: 20110517

REACTIONS (1)
  - DRUG ERUPTION [None]
